FAERS Safety Report 5876144-4 (Version None)
Quarter: 2008Q3

REPORT INFORMATION
  Report Type: 
  Country: None (occurrence: None)
  Receive Date: 20080826
  Receipt Date: 20080826
  Transmission Date: 20090109
  Serious: Yes (Other)
  Sender: FDA-Public Use
  Company Number: None

PATIENT
  Sex: Female
  Weight: 32.3 kg

DRUGS (2)
  1. SUPPRELIN LA [Suspect]
     Indication: PRECOCIOUS PUBERTY
     Dates: start: 20080418
  2. KEFLEX [Concomitant]

REACTIONS (1)
  - IMPLANT SITE CELLULITIS [None]
